FAERS Safety Report 23326611 (Version 1)
Quarter: 2023Q4

REPORT INFORMATION
  Report Type: Spontaneous
  Country: US (occurrence: US)
  Receive Date: 20231221
  Receipt Date: 20231221
  Transmission Date: 20240109
  Serious: Yes (Hospitalization)
  Sender: FDA-Public Use
  Company Number: US-GSK-US2023175177

PATIENT

DRUGS (3)
  1. TRELEGY ELLIPTA [Suspect]
     Active Substance: FLUTICASONE FUROATE\UMECLIDINIUM BROMIDE\VILANTEROL TRIFENATATE
     Indication: Hypopnoea
     Dosage: 1 PUFF(S), QD; 100/65 MCG
     Dates: start: 20230914
  2. BENADRYL [Suspect]
     Active Substance: DIPHENHYDRAMINE HYDROCHLORIDE
     Indication: Sinus pain
     Dosage: UNK
     Dates: start: 20230914
  3. ASPIRIN [Concomitant]
     Active Substance: ASPIRIN
     Indication: Blood thrombin
     Dosage: UNK UNK, QD (1 DAILY); ASPIRIN PLUS

REACTIONS (2)
  - Epistaxis [Recovered/Resolved]
  - Product use in unapproved indication [Unknown]
